FAERS Safety Report 8762387 (Version 1)
Quarter: 2012Q4

REPORT INFORMATION
  Report Type: 
  Country: US (occurrence: US)
  Receive Date: 20120830
  Receipt Date: 20120830
  Transmission Date: 20130627
  Serious: No
  Sender: FDA-Public Use
  Company Number: US-PFIZER INC-2012210517

PATIENT
  Age: 59 Year
  Sex: Female
  Weight: 75.28 kg

DRUGS (2)
  1. CELEBREX [Suspect]
     Indication: PAIN
     Dosage: 200 mg, 1x/day
     Route: 048
     Dates: start: 20120824
  2. CELEBREX [Suspect]
     Indication: SWELLING

REACTIONS (1)
  - Diarrhoea [Recovered/Resolved]
